FAERS Safety Report 10562355 (Version 1)
Quarter: 2014Q4

REPORT INFORMATION
  Report Type: Spontaneous
  Country: GB (occurrence: None)
  Receive Date: 20141031
  Receipt Date: 20141031
  Transmission Date: 20150529
  Serious: Yes (Other)
  Sender: FDA-Public Use
  Company Number: GB2014010821

PATIENT
  Sex: Female

DRUGS (5)
  1. TENOFOVIR (TENOFOVIR) UNKNOWN [Suspect]
     Active Substance: TENOFOVIR
     Indication: HIV INFECTION
     Dates: start: 200404
  2. RITONAVIR (RITONAVIR) UNKNOWN [Suspect]
     Active Substance: RITONAVIR
     Indication: HIV INFECTION
     Dates: start: 200404
  3. ABACAVIR SULFATE (ABACAVIR SULPHATE) UNKNOWN [Suspect]
     Active Substance: ABACAVIR SULFATE
     Indication: HIV INFECTION
  4. ATAZANAVIR (ATAZANAVIR) [Suspect]
     Active Substance: ATAZANAVIR
     Indication: HIV INFECTION
     Dates: start: 200404
  5. DIDANOSINE (DIDANOSINE) [Suspect]
     Active Substance: DIDANOSINE
     Indication: HIV INFECTION
     Dates: start: 200404

REACTIONS (5)
  - Pregnancy [None]
  - Placental insufficiency [None]
  - CD4 lymphocytes decreased [None]
  - Live birth [None]
  - Maternal exposure during pregnancy [None]

NARRATIVE: CASE EVENT DATE: 20060913
